FAERS Safety Report 6430107-9 (Version None)
Quarter: 2009Q4

REPORT INFORMATION
  Report Type: 
  Country: None (occurrence: None)
  Receive Date: 20091106
  Receipt Date: 20091029
  Transmission Date: 20100525
  Serious: Yes (Hospitalization, Disabling)
  Sender: FDA-Public Use
  Company Number: AT-ASTRAZENECA-2009SE23849

PATIENT
  Age: 854 Month
  Sex: Female
  Weight: 70 kg

DRUGS (4)
  1. ARIMIDEX [Suspect]
     Indication: BREAST CANCER
     Route: 048
     Dates: start: 20060401, end: 20080921
  2. ARIMIDEX [Suspect]
     Route: 048
     Dates: start: 20080922, end: 20091005
  3. SEROPRAM [Concomitant]
     Indication: DEPRESSION
     Route: 048
  4. SIMVASTATIN [Concomitant]
     Indication: HYPERCHOLESTEROLAEMIA
     Route: 048

REACTIONS (1)
  - BONE OEDEMA [None]
